FAERS Safety Report 15566964 (Version 2)
Quarter: 2019Q1

REPORT INFORMATION
  Report Type: Spontaneous
  Country: GB (occurrence: FR)
  Receive Date: 20181030
  Receipt Date: 20190301
  Transmission Date: 20190417
  Serious: Yes (Death)
  Sender: FDA-Public Use
  Company Number: FR-FRESENIUS KABI-FK201811168

PATIENT
  Age: 67 Year
  Sex: Female
  Weight: 125 kg

DRUGS (1)
  1. PROPOFOL (MANUFACTURER UNKNOWN) [Suspect]
     Active Substance: PROPOFOL
     Indication: SEDATION
     Route: 042
     Dates: start: 20181002, end: 20181003

REACTIONS (2)
  - Acute hepatic failure [Fatal]
  - Propofol infusion syndrome [Fatal]

NARRATIVE: CASE EVENT DATE: 20181004
